FAERS Safety Report 5171164-X (Version None)
Quarter: 2006Q4

REPORT INFORMATION
  Report Type: 
  Country: None (occurrence: None)
  Receive Date: 20061207
  Receipt Date: 20061207
  Transmission Date: 20070319
  Serious: Yes (Other)
  Sender: FDA-Public Use
  Company Number: None

PATIENT
  Age: 85 Year
  Sex: Female
  Weight: 65.5 kg

DRUGS (3)
  1. OCTAGAM [Suspect]
     Dosage: 25GM  25 GM Q2 WEEK IV
     Route: 042
     Dates: start: 20061004, end: 20061005
  2. OCTAGAM [Suspect]
     Dosage: 25GM  25 GM Q2 WEEK IV
     Route: 042
     Dates: start: 20061023, end: 20061024
  3. OCTAGAM [Suspect]
     Dosage: 25GM  25 GM Q2 WEEK IV
     Route: 042
     Dates: start: 20061106, end: 20061107

REACTIONS (1)
  - ANAEMIA [None]
